FAERS Safety Report 22147751 (Version 1)
Quarter: 2023Q1

REPORT INFORMATION
  Report Type: Other
  Country: IN (occurrence: None)
  Receive Date: 20230328
  Receipt Date: 20230328
  Transmission Date: 20230418
  Serious: Yes (Other)
  Sender: FDA-Public Use
  Company Number: IN-Merck Healthcare KGaA-9388535

PATIENT
  Age: 29 Year
  Sex: Female

DRUGS (2)
  1. CHORIOGONADOTROPIN ALFA [Suspect]
     Active Substance: CHORIOGONADOTROPIN ALFA
     Indication: Ovulation induction
     Dosage: ON DAY 13 AND 14
  2. CLOMIPHENE CITRATE [Concomitant]
     Active Substance: CLOMIPHENE CITRATE
     Indication: Ovulation induction
     Dosage: DAY 2 TO 6 OF MENSTRUAL CYCLE

REACTIONS (2)
  - Mania [Recovering/Resolving]
  - Off label use [Unknown]
